FAERS Safety Report 23874872 (Version 1)
Quarter: 2024Q2

REPORT INFORMATION
  Report Type: Spontaneous
  Country: US (occurrence: US)
  Receive Date: 20240520
  Receipt Date: 20240520
  Transmission Date: 20240716
  Serious: Yes (Other)
  Sender: FDA-Public Use
  Company Number: US-PERRIGO-24US004632

PATIENT
  Age: 6 Decade
  Sex: Male
  Weight: 116.2 kg

DRUGS (1)
  1. ACETAMINOPHEN [Suspect]
     Active Substance: ACETAMINOPHEN
     Indication: Procedural pain
     Dosage: 1000 MG, EVERY 6 HOURS
     Route: 048

REACTIONS (1)
  - Metabolic acidosis [Recovered/Resolved]
